FAERS Safety Report 5083651-3 (Version None)
Quarter: 2006Q3

REPORT INFORMATION
  Report Type: 
  Country: None (occurrence: None)
  Receive Date: 20060816
  Receipt Date: 20060802
  Transmission Date: 20061208
  Serious: Yes (Life-Threatening, Hospitalization)
  Sender: FDA-Public Use
  Company Number: 600325020 / AKO4852AE

PATIENT
  Age: 68 Year
  Sex: Male

DRUGS (1)
  1. AK-FLUOR, 25%, AKORN [Suspect]
     Indication: ANGIOGRAM
     Dosage: INTRAVENOUS
     Route: 042
     Dates: start: 20060801, end: 20060801

REACTIONS (7)
  - ANOXIC ENCEPHALOPATHY [None]
  - CARDIAC ARREST [None]
  - COUGH [None]
  - DRUG HYPERSENSITIVITY [None]
  - LOSS OF CONSCIOUSNESS [None]
  - PROCEDURAL COMPLICATION [None]
  - RESPIRATORY ARREST [None]
